FAERS Safety Report 21494579 (Version 4)
Quarter: 2023Q1

REPORT INFORMATION
  Report Type: Spontaneous
  Country: US (occurrence: US)
  Receive Date: 20221021
  Receipt Date: 20230103
  Transmission Date: 20230418
  Serious: Yes (Other)
  Sender: FDA-Public Use
  Company Number: US-AMGEN-USASP2022182106

PATIENT
  Sex: Female

DRUGS (2)
  1. ENBREL [Suspect]
     Active Substance: ETANERCEPT
     Indication: Psoriatic arthropathy
     Dosage: 25 MILLIGRAM, 2 TIMES/WK
     Route: 065
     Dates: start: 2002
  2. ENBREL [Suspect]
     Active Substance: ETANERCEPT
     Dosage: 25 MILLIGRAM, 2 TIMES/WK
     Route: 065

REACTIONS (7)
  - Lower limb fracture [Unknown]
  - Eye swelling [Unknown]
  - Product packaging issue [Unknown]
  - Circumstance or information capable of leading to medication error [Unknown]
  - Tremor [Unknown]
  - Feeling hot [Unknown]
  - Arthritis [Unknown]

NARRATIVE: CASE EVENT DATE: 20190101
